FAERS Safety Report 10706572 (Version 1)
Quarter: 2015Q1

REPORT INFORMATION
  Report Type: Spontaneous
  Country: US (occurrence: None)
  Receive Date: 20150109
  Receipt Date: 20150109
  Transmission Date: 20150721
  Serious: Yes (Life-Threatening, Hospitalization)
  Sender: FDA-Public Use
  Company Number: None

PATIENT
  Age: 70 Year
  Weight: 77.11 kg

DRUGS (1)
  1. CCWS (LUFENURON) [Suspect]
     Active Substance: LUFENURON
     Indication: CANDIDA INFECTION
     Dosage: 1  CAP 4X@AY 5 DAYS 1 DAYS OFF
     Route: 048
     Dates: start: 20141015, end: 20141229

REACTIONS (16)
  - Toxicity to various agents [None]
  - Lung disorder [None]
  - Renal disorder [None]
  - Gastrointestinal disorder [None]
  - Constipation [None]
  - Depression [None]
  - Headache [None]
  - Swelling [None]
  - Liver disorder [None]
  - Drug ineffective [None]
  - Arrhythmia [None]
  - Oxygen saturation decreased [None]
  - Feeling abnormal [None]
  - Hypertension [None]
  - Dyspnoea [None]
  - Respiratory distress [None]

NARRATIVE: CASE EVENT DATE: 20141229
